FAERS Safety Report 10430031 (Version 1)
Quarter: 2014Q3

REPORT INFORMATION
  Report Type: Spontaneous
  Country: JP (occurrence: JP)
  Receive Date: 20140904
  Receipt Date: 20140904
  Transmission Date: 20150326
  Serious: Yes (Death, Hospitalization)
  Sender: FDA-Public Use
  Company Number: JP-BAYER-2014-126070

PATIENT
  Age: 77 Year
  Sex: Male

DRUGS (2)
  1. BAYASPIRIN [Suspect]
     Active Substance: ASPIRIN
     Route: 048
  2. ARGATROBAN. [Interacting]
     Active Substance: ARGATROBAN
     Indication: ANTICOAGULANT THERAPY

REACTIONS (3)
  - Pulmonary haemorrhage [Fatal]
  - Subarachnoid haemorrhage [None]
  - Labelled drug-drug interaction medication error [None]
